FAERS Safety Report 5745306-9 (Version None)
Quarter: 2008Q2

REPORT INFORMATION
  Report Type: 
  Country: None (occurrence: None)
  Receive Date: 20080521
  Receipt Date: 20080515
  Transmission Date: 20081010
  Serious: Yes (Hospitalization)
  Sender: FDA-Public Use
  Company Number: GB-TEVA-171641ISR

PATIENT
  Age: 56 Year
  Sex: Male

DRUGS (2)
  1. SIMVASTATIN [Suspect]
     Route: 048
  2. SIMVASTATIN [Suspect]
     Route: 048

REACTIONS (3)
  - CARDIAC DISORDER [None]
  - COMPARTMENT SYNDROME [None]
  - ERYTHEMA NODOSUM [None]
